FAERS Safety Report 24382519 (Version 1)
Quarter: 2024Q4

REPORT INFORMATION
  Report Type: Spontaneous
  Country: US (occurrence: US)
  Receive Date: 20241001
  Receipt Date: 20241001
  Transmission Date: 20250114
  Serious: No
  Sender: SPARK THERAPEUTICS
  Company Number: US-SPARK THERAPEUTICS INC.-US-SPK-24-00003

PATIENT
  Age: 55 Year
  Sex: Male

DRUGS (6)
  1. LUXTURNA [Suspect]
     Active Substance: VORETIGENE NEPARVOVEC-RZYL
     Indication: RPE65 gene mutation
     Dosage: 300 UL, LEFT EYE, SUBRETINAL USE
     Dates: start: 20230104, end: 20230104
  2. LUXTURNA [Suspect]
     Active Substance: VORETIGENE NEPARVOVEC-RZYL
     Indication: Retinitis pigmentosa
     Dosage: 300 UL, RIGHT EYE, SUBRETINAL USE
     Dates: start: 20230118, end: 20230118
  3. LUXTURNA [Suspect]
     Active Substance: VORETIGENE NEPARVOVEC-RZYL
     Indication: Retinitis pigmentosa
     Dosage: LEFT EYE
     Dates: start: 20230104, end: 20230104
  4. LUXTURNA [Suspect]
     Active Substance: VORETIGENE NEPARVOVEC-RZYL
     Indication: RPE65 gene mutation
     Dosage: RIGHT EYE
     Dates: start: 20230118, end: 20230118
  5. ALLOPURINOL [Concomitant]
     Active Substance: ALLOPURINOL
     Indication: Product used for unknown indication
     Dosage: 300 MILLIGRAM
  6. AMLODIPINE [Concomitant]
     Active Substance: AMLODIPINE BESYLATE
     Indication: Product used for unknown indication
     Dosage: 5 MILLIGRAM

REACTIONS (3)
  - Photophobia [Not Recovered/Not Resolved]
  - Retinal depigmentation [Not Recovered/Not Resolved]
  - Drug ineffective [Not Recovered/Not Resolved]
